FAERS Safety Report 24044199 (Version 1)
Quarter: 2024Q3

REPORT INFORMATION
  Report Type: Spontaneous
  Country: JP (occurrence: JP)
  Receive Date: 20240703
  Receipt Date: 20240703
  Transmission Date: 20241016
  Serious: Yes (Hospitalization)
  Sender: ROCHE
  Company Number: JP-002147023-NVSJ2024JP007417

PATIENT
  Age: 70 Year
  Sex: Female

DRUGS (3)
  1. LUCENTIS [Suspect]
     Active Substance: RANIBIZUMAB
     Indication: Retinal vein occlusion
     Dosage: 10 MG
     Route: 050
     Dates: start: 20220316
  2. LUCENTIS [Suspect]
     Active Substance: RANIBIZUMAB
     Dosage: 10 MG
     Route: 050
     Dates: start: 20220513
  3. LUCENTIS [Suspect]
     Active Substance: RANIBIZUMAB
     Dosage: 10 MG
     Route: 050
     Dates: start: 20220715, end: 20220715

REACTIONS (2)
  - Macular hole [Recovered/Resolved]
  - Intraocular pressure increased [Recovering/Resolving]

NARRATIVE: CASE EVENT DATE: 20220916
